FAERS Safety Report 23084742 (Version 1)
Quarter: 2023Q4

REPORT INFORMATION
  Report Type: Spontaneous
  Country: BR (occurrence: None)
  Receive Date: 20231019
  Receipt Date: 20231019
  Transmission Date: 20240110
  Serious: Yes (Other)
  Sender: FDA-Public Use
  Company Number: 2023A233968

PATIENT
  Age: 40 Year
  Sex: Female
  Weight: 59 kg

DRUGS (3)
  1. TAGRISSO [Suspect]
     Active Substance: OSIMERTINIB
     Indication: Lung neoplasm malignant
     Route: 048
     Dates: start: 202210
  2. DIPYRONE [Concomitant]
     Active Substance: DIPYRONE
     Indication: Pain
  3. TYLEX [Concomitant]
     Indication: Pain

REACTIONS (6)
  - Nodule [Unknown]
  - Weight decreased [Recovered/Resolved]
  - Hypophagia [Not Recovered/Not Resolved]
  - Fatigue [Unknown]
  - Skin exfoliation [Recovering/Resolving]
  - Dry skin [Recovering/Resolving]

NARRATIVE: CASE EVENT DATE: 20230101
